FAERS Safety Report 21652179 (Version 2)
Quarter: 2022Q4

REPORT INFORMATION
  Report Type: Report from Study
  Country: US (occurrence: US)
  Receive Date: 20221128
  Receipt Date: 20221223
  Transmission Date: 20230113
  Serious: Yes (Other)
  Sender: FDA-Public Use
  Company Number: US-GILEAD-2022-0606170

PATIENT
  Sex: Male

DRUGS (2)
  1. AMBRISENTAN [Suspect]
     Active Substance: AMBRISENTAN
     Indication: Product used for unknown indication
     Dosage: 10 MG, QD
     Route: 048
     Dates: start: 20210921
  2. TADALAFIL [Concomitant]
     Active Substance: TADALAFIL

REACTIONS (5)
  - Spinal operation [Unknown]
  - General physical health deterioration [Unknown]
  - Occupational therapy [Unknown]
  - Neck pain [Unknown]
  - Back pain [Unknown]
